FAERS Safety Report 7597029-1 (Version None)
Quarter: 2011Q3

REPORT INFORMATION
  Report Type: 
  Country: None (occurrence: None)
  Receive Date: 20110708
  Receipt Date: 20110701
  Transmission Date: 20111222
  Serious: Yes (Disabling, Other)
  Sender: FDA-Public Use
  Company Number: NP-PFIZER INC-2011080973

PATIENT
  Age: 26 Year
  Sex: Female
  Weight: 40 kg

DRUGS (4)
  1. PANTOP [Concomitant]
     Dosage: 40 MG, 1X/DAY
  2. PREDNISOLONE [Suspect]
     Indication: IDIOPATHIC THROMBOCYTOPENIC PURPURA
     Dosage: 2 MG/KG, UNK
     Route: 048
     Dates: start: 20090101, end: 20100101
  3. ALPRAX [Concomitant]
     Dosage: 0.5 MG, 1X/DAY
  4. SHELCAL [Concomitant]
     Dosage: 500 MG, 2X/DAY

REACTIONS (2)
  - OSTEONECROSIS [None]
  - OSTEOCHONDRITIS [None]
